FAERS Safety Report 17056470 (Version 1)
Quarter: 2019Q4

REPORT INFORMATION
  Report Type: Spontaneous
  Country: US (occurrence: US)
  Receive Date: 20191121
  Receipt Date: 20191121
  Transmission Date: 20200122
  Serious: No
  Sender: FDA-Public Use
  Company Number: US-DRREDDYS-USA/USA/19/0116073

PATIENT
  Age: 83 Year
  Sex: Female
  Weight: 92.25 kg

DRUGS (9)
  1. HABITROL [Suspect]
     Active Substance: NICOTINE
     Indication: TOBACCO USER
     Route: 062
     Dates: start: 20191103
  2. FUROSEMIDE. [Concomitant]
     Active Substance: FUROSEMIDE
     Indication: OEDEMA
  3. LEVOTHYROXINE. [Concomitant]
     Active Substance: LEVOTHYROXINE
     Indication: PRODUCT USED FOR UNKNOWN INDICATION
  4. PRAVASTATIN. [Concomitant]
     Active Substance: PRAVASTATIN
     Indication: PRODUCT USED FOR UNKNOWN INDICATION
  5. POTASSIUM [Concomitant]
     Active Substance: POTASSIUM
     Indication: PRODUCT USED FOR UNKNOWN INDICATION
  6. GABAPENTIN. [Concomitant]
     Active Substance: GABAPENTIN
     Indication: PRODUCT USED FOR UNKNOWN INDICATION
  7. ESCITALOPRAM [Concomitant]
     Active Substance: ESCITALOPRAM OXALATE
     Indication: PRODUCT USED FOR UNKNOWN INDICATION
  8. CLONAZEPAM. [Concomitant]
     Active Substance: CLONAZEPAM
     Indication: ANXIETY
  9. MIRTAZAPINE. [Concomitant]
     Active Substance: MIRTAZAPINE
     Indication: PRODUCT USED FOR UNKNOWN INDICATION

REACTIONS (3)
  - Nausea [Not Recovered/Not Resolved]
  - Product quality issue [Unknown]
  - Drug ineffective [Unknown]

NARRATIVE: CASE EVENT DATE: 20191103
